FAERS Safety Report 16699260 (Version 1)
Quarter: 2019Q3

REPORT INFORMATION
  Report Type: Spontaneous
  Country: FR (occurrence: FR)
  Receive Date: 20190813
  Receipt Date: 20190813
  Transmission Date: 20191004
  Serious: Yes (Life-Threatening, Congenital Anomaly)
  Sender: FDA-Public Use
  Company Number: FR-MYLANLABS-2019M1075692

PATIENT
  Sex: Female
  Weight: 2.56 kg

DRUGS (2)
  1. IMUREL                             /00001501/ [Concomitant]
     Active Substance: AZATHIOPRINE SODIUM
     Dosage: UNK
     Route: 064
     Dates: end: 20190117
  2. KETOPROFEN. [Suspect]
     Active Substance: KETOPROFEN
     Indication: ANOGENITAL WARTS
     Dosage: 100 MILLIGRAM
     Route: 064
     Dates: start: 20190117, end: 20190117

REACTIONS (3)
  - Foetal exposure during pregnancy [Recovered/Resolved]
  - Precipitate labour [Recovered/Resolved]
  - Ductus arteriosus premature closure [Recovered/Resolved]

NARRATIVE: CASE EVENT DATE: 20190117
